FAERS Safety Report 15116882 (Version 2)
Quarter: 2018Q4

REPORT INFORMATION
  Report Type: Spontaneous
  Country: IT (occurrence: IT)
  Receive Date: 20180706
  Receipt Date: 20181126
  Transmission Date: 20190204
  Serious: Yes (Hospitalization)
  Sender: FDA-Public Use
  Company Number: IT-ELI_LILLY_AND_COMPANY-IT201807000991

PATIENT
  Age: 47 Year
  Sex: Female

DRUGS (4)
  1. ZOLPIDEM [Suspect]
     Active Substance: ZOLPIDEM\ZOLPIDEM TARTRATE
     Indication: INSOMNIA
     Dosage: 30 DF, SINGLE
     Route: 048
     Dates: start: 20180426, end: 20180426
  2. CYMBALTA [Suspect]
     Active Substance: DULOXETINE HYDROCHLORIDE
     Indication: DEPRESSION
     Dosage: 10 DF, SINGLE
     Route: 048
     Dates: start: 20180426, end: 20180426
  3. OLANZAPINA ACTAVIS [Suspect]
     Active Substance: OLANZAPINE
     Indication: PRODUCT USED FOR UNKNOWN INDICATION
     Dosage: 10 DF, SINGLE
     Route: 048
     Dates: start: 20180426, end: 20180426
  4. FELISON [Suspect]
     Active Substance: FLURAZEPAM MONOHYDROCHLORIDE
     Indication: INSOMNIA
     Dosage: 30 DF, SINGLE
     Route: 048
     Dates: start: 20180426, end: 20180426

REACTIONS (2)
  - Drug abuse [Recovered/Resolved]
  - Sopor [Recovered/Resolved]

NARRATIVE: CASE EVENT DATE: 20180426
